FAERS Safety Report 21519222 (Version 1)
Quarter: 2022Q4

REPORT INFORMATION
  Report Type: Spontaneous
  Country: US (occurrence: None)
  Receive Date: 20221027
  Receipt Date: 20221027
  Transmission Date: 20230112
  Serious: No
  Sender: FDA-Public Use
  Company Number: None

PATIENT
  Sex: Female
  Weight: 70.31 kg

DRUGS (1)
  1. METOPROLOL SUCCINATE [Suspect]
     Active Substance: METOPROLOL SUCCINATE
     Indication: Hypertension

REACTIONS (8)
  - Palpitations [None]
  - Rash [None]
  - Dizziness [None]
  - Product quality issue [None]
  - Vertigo [None]
  - Blood pressure increased [None]
  - Chest discomfort [None]
  - Malaise [None]
